FAERS Safety Report 14334363 (Version 3)
Quarter: 2018Q1

REPORT INFORMATION
  Report Type: Report from Study
  Country: US (occurrence: US)
  Receive Date: 20171228
  Receipt Date: 20180223
  Transmission Date: 20180509
  Serious: Yes (Hospitalization, Other)
  Sender: FDA-Public Use
  Company Number: US-ACTELION-A-NJ2016-134901

PATIENT
  Age: 37 Year
  Sex: Female

DRUGS (3)
  1. REMODULIN [Concomitant]
     Active Substance: TREPROSTINIL
     Dosage: 98 NG/KG, PER MIN
     Route: 042
     Dates: start: 201512
  2. TRACLEER [Suspect]
     Active Substance: BOSENTAN
     Indication: PULMONARY ARTERIAL HYPERTENSION
     Dosage: 125 MG, BID
     Route: 048
     Dates: start: 200811
  3. SILDENAFIL. [Concomitant]
     Active Substance: SILDENAFIL
     Dosage: 80 MG, BID
     Dates: start: 200909

REACTIONS (16)
  - Dehydration [Recovering/Resolving]
  - Device related infection [Unknown]
  - Staphylococcal infection [Unknown]
  - Right ventricular failure [Recovering/Resolving]
  - Septic shock [Recovering/Resolving]
  - Blood culture positive [Unknown]
  - Haemodialysis [Unknown]
  - Influenza [Unknown]
  - Staphylococcal sepsis [Recovering/Resolving]
  - Myalgia [Unknown]
  - Catheter site erythema [Unknown]
  - Pulmonary arterial hypertension [Recovering/Resolving]
  - Cough [Unknown]
  - Rhinorrhoea [Unknown]
  - Malaise [Recovering/Resolving]
  - Respiratory failure [Recovering/Resolving]

NARRATIVE: CASE EVENT DATE: 20160401
